FAERS Safety Report 13607188 (Version 6)
Quarter: 2018Q2

REPORT INFORMATION
  Report Type: Report from Study
  Country: CA (occurrence: CA)
  Receive Date: 20170602
  Receipt Date: 20180618
  Transmission Date: 20180711
  Serious: Yes (Hospitalization, Other)
  Sender: FDA-Public Use
  Company Number: PHHY2017CA068573

PATIENT
  Age: 56 Year
  Sex: Female

DRUGS (6)
  1. SANDOSTATIN LAR DEPOT [Suspect]
     Active Substance: OCTREOTIDE ACETATE
     Dosage: 30 MG, UNK (EVERY 3 WEEKS)
     Route: 030
     Dates: start: 20171004
  2. OCTREOTIDE. [Suspect]
     Active Substance: OCTREOTIDE
     Indication: CARCINOID TUMOUR
     Dosage: UNK, TID
     Route: 058
     Dates: start: 20170504, end: 20170515
  3. SANDOSTATIN LAR DEPOT [Suspect]
     Active Substance: OCTREOTIDE ACETATE
     Dosage: 30 MG, QMO
     Route: 030
     Dates: start: 20170515
  4. RAMIPRIL HCTZ [Concomitant]
     Active Substance: HYDROCHLOROTHIAZIDE\RAMIPRIL
     Indication: HYPERTENSION
     Dosage: UNK (5 MG OF RAMIPRIL AND 12.5 MG OF HYDROCHLOROTHIAZIDE)
     Route: 048
     Dates: start: 2002
  5. OCTREOTIDE. [Suspect]
     Active Substance: OCTREOTIDE
     Dosage: 100 UG, QD
     Route: 058
     Dates: start: 20170516
  6. SANDOSTATIN LAR DEPOT [Suspect]
     Active Substance: OCTREOTIDE ACETATE
     Indication: CARCINOID TUMOUR
     Dosage: 30 MG, QMO
     Route: 030
     Dates: start: 20170315

REACTIONS (22)
  - Ascites [Unknown]
  - Nausea [Unknown]
  - Flatulence [Unknown]
  - Dehydration [Unknown]
  - Frequent bowel movements [Unknown]
  - Haemoglobin decreased [Unknown]
  - Recurrent cancer [Unknown]
  - Blood pressure systolic increased [Unknown]
  - Dizziness [Unknown]
  - Asthenia [Unknown]
  - Vomiting [Unknown]
  - Abdominal pain [Unknown]
  - Weight decreased [Unknown]
  - Malaise [Unknown]
  - Headache [Unknown]
  - Loss of consciousness [Unknown]
  - Dyspepsia [Recovering/Resolving]
  - Constipation [Unknown]
  - Diarrhoea [Unknown]
  - Inappropriate schedule of drug administration [Unknown]
  - Blood pressure increased [Unknown]
  - Drug ineffective [Unknown]

NARRATIVE: CASE EVENT DATE: 2017
